FAERS Safety Report 8297752-X (Version None)
Quarter: 2012Q2

REPORT INFORMATION
  Report Type: 
  Country: None (occurrence: None)
  Receive Date: 20120419
  Receipt Date: 20120410
  Transmission Date: 20120825
  Serious: Yes (Other)
  Sender: FDA-Public Use
  Company Number: NZ-B.I. PHARMACEUTICALS,INC./RIDGEFIELD-2012-EU-02067GD

PATIENT
  Age: 68 Year
  Sex: Male
  Weight: 90 kg

DRUGS (12)
  1. DILTIAZEM HCL [Concomitant]
  2. OMEPRAZOLE [Concomitant]
  3. ZOPICLONE [Concomitant]
  4. DIPYRIDAMOLE [Suspect]
  5. CITALOPRAM HYDROBROMIDE [Concomitant]
  6. AMOXYCILLIN PLUS CLAVULANIC ACID [Concomitant]
  7. DIGOXIN [Concomitant]
  8. ALLOPURINOL [Concomitant]
  9. LAXSOL [Concomitant]
  10. DABIGATRAN [Suspect]
     Indication: ATRIAL FIBRILLATION
     Dosage: 220 MG
  11. SIMVASTATIN [Concomitant]
  12. PARACODE [Concomitant]

REACTIONS (1)
  - CEREBROVASCULAR ACCIDENT [None]
